FAERS Safety Report 16763269 (Version 1)
Quarter: 2019Q3

REPORT INFORMATION
  Report Type: Spontaneous
  Country: GB (occurrence: GB)
  Receive Date: 20190902
  Receipt Date: 20190902
  Transmission Date: 20191005
  Serious: Yes (Other)
  Sender: FDA-Public Use
  Company Number: GB-TEVA-2019-GB-1099936

PATIENT
  Age: 78 Year
  Sex: Female
  Weight: 92 kg

DRUGS (11)
  1. VALSARTAN. [Concomitant]
     Active Substance: VALSARTAN
     Dosage: 1 DOSAGE FORMS PER DAY
     Dates: start: 20180404
  2. BISOPROLOL [Concomitant]
     Active Substance: BISOPROLOL
     Dosage: 1 DOSAGE FORMS PER DAY
     Dates: start: 20180404
  3. SALBUTAMOL [Suspect]
     Active Substance: ALBUTEROL
     Dosage: 2 DOSAGE FORMS
     Route: 055
     Dates: start: 20190528, end: 20190625
  4. CANDESARTAN. [Concomitant]
     Active Substance: CANDESARTAN
     Dosage: 1 DOSAGE FORMS PER DAY
     Dates: start: 20190621
  5. SIMVASTATIN. [Concomitant]
     Active Substance: SIMVASTATIN
     Indication: BLOOD CHOLESTEROL INCREASED
     Dosage: AT NIGHT, 1 DOSAGE FORMS PER DAY
     Dates: start: 20180404
  6. ACETYLSALICYLIC ACID [Concomitant]
     Active Substance: ASPIRIN
     Dosage: 1 DOSAGE FORMS PER DAY
     Dates: start: 20180404
  7. GLYCERYL TRINITRATE [Concomitant]
     Active Substance: NITROGLYCERIN
     Dosage: SPRAY ONE METERED DOSE UNDER THE TONGUE WHEN RE...
     Route: 060
     Dates: start: 20180404
  8. AMOXICILLIN. [Concomitant]
     Active Substance: AMOXICILLIN
     Dosage: SEVEN DAY, 3 DOSAGE FORMS PER DAY
     Dates: start: 20190528, end: 20190604
  9. PREDNISOLONE. [Concomitant]
     Active Substance: PREDNISOLONE
     Dosage: IN THE MORNING FOR SEVEN DAYS, 6 DOSAGE FORMS PER DAY
     Dates: start: 20190528, end: 20190604
  10. LANSOPRAZOLE. [Concomitant]
     Active Substance: LANSOPRAZOLE
     Indication: DYSPEPSIA
     Dosage: AS REQUIRED (FOR INDIGESTI..., 1 DOSAGE FORMS PER DAY
     Dates: start: 20180404
  11. INDAPAMIDE. [Concomitant]
     Active Substance: INDAPAMIDE
     Dosage: EACH MORNING, 1 DOSAGE FORMS PER DAY
     Dates: start: 20180404

REACTIONS (2)
  - Lip swelling [Unknown]
  - Urticaria [Recovering/Resolving]
